FAERS Safety Report 4345328-9 (Version None)
Quarter: 2004Q2

REPORT INFORMATION
  Report Type: 
  Country: None (occurrence: None)
  Receive Date: 20040422
  Receipt Date: 20040422
  Transmission Date: 20050107
  Serious: Yes (Disabling)
  Sender: FDA-Public Use
  Company Number: None

PATIENT
  Age: 56 Year
  Sex: Female
  Weight: 74.8435 kg

DRUGS (6)
  1. SINGULAIR [Suspect]
     Indication: ASTHMA
     Dosage: 1 DAILY ORAL
     Route: 048
     Dates: start: 20040405, end: 20040405
  2. SINGULAIR [Suspect]
     Indication: MULTIPLE ALLERGIES
     Dosage: 1 DAILY ORAL
     Route: 048
     Dates: start: 20040405, end: 20040405
  3. HERBAL CAPSULE [Concomitant]
  4. HORSERADISH [Concomitant]
  5. FLOVENT [Concomitant]
  6. NASONEX [Concomitant]

REACTIONS (10)
  - ABDOMINAL PAIN [None]
  - ARTHRALGIA [None]
  - DIARRHOEA [None]
  - FATIGUE [None]
  - INFLUENZA LIKE ILLNESS [None]
  - MUCOSAL DISCOLOURATION [None]
  - MYALGIA [None]
  - PRODUCTIVE COUGH [None]
  - RESPIRATORY DISORDER [None]
  - THROAT IRRITATION [None]
